FAERS Safety Report 7150903-2 (Version None)
Quarter: 2010Q4

REPORT INFORMATION
  Report Type: 
  Country: None (occurrence: None)
  Receive Date: 20101207
  Receipt Date: 20101207
  Transmission Date: 20110411
  Serious: No
  Sender: FDA-Public Use
  Company Number: None

PATIENT
  Sex: Female
  Weight: 71.7 kg

DRUGS (14)
  1. BEVACIZUMAB (RHUMAB VEGF) [Suspect]
     Dosage: 8368 MG
     Dates: start: 20101014
  2. CYCLOPHOSPHAMIDE [Suspect]
     Dosage: 4056 MG
     Dates: start: 20100722
  3. DOXORUBICIN HYDROCHLORIDE [Suspect]
     Dosage: 404 MG
     Dates: start: 20100722
  4. TAXOL [Suspect]
     Dosage: 1608 MG
     Dates: start: 20101014
  5. PEGFILGRASTIM (NESLASTA) [Suspect]
     Dosage: 24 MG
     Dates: start: 20100723
  6. AVANDIA [Concomitant]
  7. INSULIN [Concomitant]
  8. JANUVIA [Concomitant]
  9. METFORMIN [Concomitant]
  10. METOPROLOL TARTRATE [Concomitant]
  11. OXYCODONE [Concomitant]
  12. SIMVASTATIN [Concomitant]
  13. ACETAMINOPHEN [Concomitant]
  14. WARFARIN [Concomitant]

REACTIONS (3)
  - EJECTION FRACTION DECREASED [None]
  - ELECTROCARDIOGRAM QT PROLONGED [None]
  - LEFT VENTRICULAR DYSFUNCTION [None]
